FAERS Safety Report 5492110-5 (Version None)
Quarter: 2007Q4

REPORT INFORMATION
  Report Type: 
  Country: None (occurrence: None)
  Receive Date: 20071022
  Receipt Date: 20071017
  Transmission Date: 20080405
  Serious: Yes (Death, Other)
  Sender: FDA-Public Use
  Company Number: BR-BRISTOL-MYERS SQUIBB COMPANY-13906375

PATIENT
  Age: 51 Year
  Sex: Male

DRUGS (5)
  1. DASATINIB [Suspect]
     Indication: LEUKAEMIA BASOPHILIC
     Dosage: 140 MG DAILY FROM 02-SEP-07 TO 04-SEP-07.
     Dates: start: 20070827, end: 20070902
  2. BACTRIM [Concomitant]
     Dosage: 12/12 HOURS TWICE A WEEK
  3. RANITIDINE HCL [Concomitant]
  4. VORICONAZOLE [Concomitant]
  5. ALLOPURINOL [Concomitant]

REACTIONS (3)
  - RESPIRATORY FAILURE [None]
  - SEPSIS [None]
  - WHITE BLOOD CELL COUNT DECREASED [None]
